FAERS Safety Report 7206951-7 (Version None)
Quarter: 2011Q1

REPORT INFORMATION
  Report Type: 
  Country: None (occurrence: None)
  Receive Date: 20110103
  Receipt Date: 20101215
  Transmission Date: 20110831
  Serious: Yes (Congenital Anomaly)
  Sender: FDA-Public Use
  Company Number: A0902092A

PATIENT
  Sex: Female

DRUGS (1)
  1. PAXIL [Suspect]
     Indication: DEPRESSION
     Route: 048

REACTIONS (4)
  - CRANIOFACIAL DYSOSTOSIS [None]
  - CRANIOSYNOSTOSIS [None]
  - HYPERTELORISM OF ORBIT [None]
  - DRUG EXPOSURE DURING PREGNANCY [None]
